FAERS Safety Report 4954572-9 (Version None)
Quarter: 2006Q1

REPORT INFORMATION
  Report Type: 
  Country: None (occurrence: None)
  Receive Date: 20060322
  Receipt Date: 20060314
  Transmission Date: 20060701
  Serious: Yes (Hospitalization)
  Sender: FDA-Public Use
  Company Number: RENA-11688

PATIENT
  Age: 58 Year
  Sex: Female
  Weight: 36.6 kg

DRUGS (7)
  1. RENAGEL [Suspect]
     Indication: HYPERPHOSPHATAEMIA
     Dosage: 3 G TID PO
     Route: 048
     Dates: start: 20041222, end: 20051114
  2. RED BLOOD CELLS [Concomitant]
  3. ALLOPURINOL [Concomitant]
  4. BUFFERIN [Concomitant]
  5. KAYEXALATE [Concomitant]
  6. DIAZEPAM [Concomitant]
  7. GASLON (IRSOGLADINE MALEATE) [Concomitant]

REACTIONS (1)
  - SMALL INTESTINAL OBSTRUCTION [None]
